FAERS Safety Report 9677208 (Version 1)
Quarter: 2013Q4

REPORT INFORMATION
  Report Type: Spontaneous
  Country: US (occurrence: None)
  Receive Date: 20131107
  Receipt Date: 20131107
  Transmission Date: 20140711
  Serious: Yes (Other)
  Sender: FDA-Public Use
  Company Number: None

PATIENT
  Age: 68 Year
  Sex: Female
  Weight: 71.67 kg

DRUGS (1)
  1. NOSTRILLA [Suspect]
     Dosage: 2 SPRAYS PER NOSTRIL TWICE DAILY INHALATION
     Route: 055
     Dates: start: 20131102, end: 20131104

REACTIONS (2)
  - Headache [None]
  - Sinus headache [None]
